FAERS Safety Report 6978733-2 (Version None)
Quarter: 2010Q3

REPORT INFORMATION
  Report Type: 
  Country: None (occurrence: None)
  Receive Date: 20100913
  Receipt Date: 20100902
  Transmission Date: 20110219
  Serious: Yes (Other)
  Sender: FDA-Public Use
  Company Number: B0674118A

PATIENT
  Sex: Male

DRUGS (4)
  1. RANIDIL [Suspect]
     Indication: PRODUCT USED FOR UNKNOWN INDICATION
     Dosage: 20ML PER DAY
     Route: 048
     Dates: start: 20100319, end: 20100726
  2. BACTRIM [Suspect]
     Indication: PRODUCT USED FOR UNKNOWN INDICATION
     Dosage: 320MG PER DAY
     Route: 048
     Dates: start: 20100319, end: 20100726
  3. DELTACORTENE [Suspect]
     Indication: PRODUCT USED FOR UNKNOWN INDICATION
     Dosage: 60MG PER DAY
     Route: 048
     Dates: start: 20100322, end: 20100726
  4. MYCOSTATIN [Suspect]
     Indication: PRODUCT USED FOR UNKNOWN INDICATION
     Dosage: 30ML PER DAY
     Route: 048
     Dates: start: 20100319, end: 20100726

REACTIONS (2)
  - HYPERBILIRUBINAEMIA [None]
  - HYPERTRANSAMINASAEMIA [None]
